FAERS Safety Report 13092940 (Version 1)
Quarter: 2017Q1

REPORT INFORMATION
  Report Type: Spontaneous
  Country: NO (occurrence: NO)
  Receive Date: 20170106
  Receipt Date: 20170106
  Transmission Date: 20170428
  Serious: Yes (Hospitalization)
  Sender: FDA-Public Use
  Company Number: NO-TEVA-724303ACC

PATIENT
  Age: 16 Year
  Sex: Male

DRUGS (6)
  1. FENTANYL. [Suspect]
     Active Substance: FENTANYL
     Indication: STUPOR
     Route: 051
     Dates: start: 20161206, end: 20161206
  2. CELECOXIB. [Concomitant]
     Active Substance: CELECOXIB
     Dates: start: 20161206
  3. REMIFENTANIL [Concomitant]
     Active Substance: REMIFENTANIL
     Route: 051
     Dates: start: 20161206, end: 20161206
  4. DEXAMETHASONE. [Concomitant]
     Active Substance: DEXAMETHASONE
     Route: 051
     Dates: start: 20161206, end: 20161206
  5. PARACET [Concomitant]
     Active Substance: ACETAMINOPHEN
     Dates: start: 20161206
  6. PROPOFOL. [Concomitant]
     Active Substance: PROPOFOL
     Route: 051
     Dates: start: 20161206, end: 20161206

REACTIONS (3)
  - Coma [Recovered/Resolved]
  - Drug effect prolonged [Recovered/Resolved]
  - Anaesthetic complication neurological [Recovered/Resolved]

NARRATIVE: CASE EVENT DATE: 20161206
